FAERS Safety Report 13918828 (Version 1)
Quarter: 2017Q3

REPORT INFORMATION
  Report Type: Spontaneous
  Country: US (occurrence: None)
  Receive Date: 20170828
  Receipt Date: 20170828
  Transmission Date: 20171127
  Serious: Yes (Death)
  Sender: FDA-Public Use
  Company Number: None

PATIENT
  Age: 56 Year
  Sex: Female

DRUGS (11)
  1. CACLIUM [Concomitant]
  2. ESCITALOPRAM [Concomitant]
     Active Substance: ESCITALOPRAM OXALATE
  3. MEKINIST [Suspect]
     Active Substance: TRAMETINIB DIMETHYL SULFOXIDE
     Indication: NEOPLASM MALIGNANT
     Route: 048
     Dates: start: 20170302
  4. CLINDAMYCIN. [Concomitant]
     Active Substance: CLINDAMYCIN
  5. KEYTRUDA [Concomitant]
     Active Substance: PEMBROLIZUMAB
  6. MULTIVITAMIN [Concomitant]
     Active Substance: VITAMINS
  7. PROBIOTIC [Concomitant]
     Active Substance: PROBIOTICS NOS
  8. KENALOG [Concomitant]
     Active Substance: TRIAMCINOLONE ACETONIDE
  9. OMEPRAZOLE. [Concomitant]
     Active Substance: OMEPRAZOLE
  10. CLONAZEPAM. [Concomitant]
     Active Substance: CLONAZEPAM
  11. FLAXSEED [Concomitant]
     Active Substance: FLAX SEED

REACTIONS (1)
  - Death [None]
